FAERS Safety Report 6435840-0 (Version None)
Quarter: 2009Q4

REPORT INFORMATION
  Report Type: 
  Country: None (occurrence: None)
  Receive Date: 20091111
  Receipt Date: 20091105
  Transmission Date: 20100525
  Serious: Yes (Death)
  Sender: FDA-Public Use
  Company Number: US-GILEAD-2009-0025251

PATIENT
  Sex: Female
  Weight: 54.026 kg

DRUGS (15)
  1. LETAIRIS [Suspect]
     Indication: PULMONARY ARTERIAL HYPERTENSION
     Route: 048
     Dates: start: 20080521, end: 20091104
  2. SPIRONOLACTONE [Concomitant]
  3. HYDROCHLOROTHIAZIDE [Concomitant]
  4. DIGOXIN [Concomitant]
  5. AMIODARONE HCL [Concomitant]
  6. LASIX [Concomitant]
  7. REVATIO [Concomitant]
  8. FLOLAN [Concomitant]
  9. PROPRANOLOL [Concomitant]
  10. ALPRAZOLAM [Concomitant]
  11. GABAPENTIN [Concomitant]
  12. IRON [Concomitant]
  13. METHIMAZOLE [Concomitant]
  14. METANX [Concomitant]
  15. K-DUR [Concomitant]

REACTIONS (2)
  - CARDIOGENIC SHOCK [None]
  - HAEMORRHAGE [None]
